FAERS Safety Report 5612189-7 (Version None)
Quarter: 2008Q1

REPORT INFORMATION
  Report Type: 
  Country: None (occurrence: None)
  Receive Date: 20080131
  Receipt Date: 20080131
  Transmission Date: 20080703
  Serious: Yes (Disabling)
  Sender: FDA-Public Use
  Company Number: None

PATIENT
  Age: 55 Year
  Sex: Female

DRUGS (1)
  1. NATALIZUMAB  300MG   BIOGEN- IDEC INC [Suspect]
     Indication: MULTIPLE SCLEROSIS
     Dosage: 300MG  ONCE  IV
     Route: 042
     Dates: start: 20080207, end: 20080207

REACTIONS (6)
  - ERYTHEMA [None]
  - FEELING HOT [None]
  - HYPOAESTHESIA [None]
  - NAUSEA [None]
  - PARAESTHESIA [None]
  - PRURITUS [None]
